FAERS Safety Report 7149449-7 (Version None)
Quarter: 2010Q4

REPORT INFORMATION
  Report Type: 
  Country: None (occurrence: None)
  Receive Date: 20101209
  Receipt Date: 20101202
  Transmission Date: 20110411
  Serious: No
  Sender: FDA-Public Use
  Company Number: US-PFIZER INC-2010162943

PATIENT
  Sex: Female
  Weight: 68.027 kg

DRUGS (1)
  1. PREMARIN [Suspect]
     Dosage: UNK DF, 1X/DAY
     Route: 048
     Dates: start: 19800101, end: 20101101

REACTIONS (3)
  - CRYING [None]
  - HOT FLUSH [None]
  - MOOD SWINGS [None]
